FAERS Safety Report 4610330-6 (Version None)
Quarter: 2005Q1

REPORT INFORMATION
  Report Type: 
  Country: None (occurrence: None)
  Receive Date: 20050314
  Receipt Date: 20050222
  Transmission Date: 20050727
  Serious: Yes (Death)
  Sender: FDA-Public Use
  Company Number: 10408

PATIENT
  Age: 64 Year
  Sex: Male

DRUGS (5)
  1. FLUOROURACIL [Suspect]
     Indication: COLORECTAL CANCER
     Dosage: 3888 MG PER_CYCLE IV
     Route: 042
     Dates: start: 20050103, end: 20050214
  2. FLUOROURACIL [Suspect]
     Indication: COLORECTAL CANCER
     Dosage: 649 MG ONCE IV
     Route: 042
     Dates: start: 20050207
  3. LEUCOVORIN [Suspect]
     Indication: COLORECTAL CANCER
     Dosage: 648 MG PER_CYCLE IV
     Route: 042
     Dates: start: 20050103, end: 20050214
  4. CETUXIMAB [Suspect]
     Indication: COLORECTAL CANCER
     Dosage: 400 MG WEEKLY IV
     Route: 042
     Dates: start: 20050103, end: 20050214
  5. OXALIPLATIN [Suspect]
     Indication: COLORECTAL CANCER
     Dosage: 134.4 MG FORTNIGHTLY IV
     Route: 042
     Dates: start: 20050103, end: 20050214

REACTIONS (4)
  - ABDOMINAL DISCOMFORT [None]
  - FATIGUE [None]
  - MUSCLE STRAIN [None]
  - SUDDEN DEATH [None]
